FAERS Safety Report 20904194 (Version 2)
Quarter: 2023Q2

REPORT INFORMATION
  Report Type: Report from Study
  Country: US (occurrence: US)
  Receive Date: 20220602
  Receipt Date: 20230508
  Transmission Date: 20230722
  Serious: No
  Sender: FDA-Public Use
  Company Number: US-KYOWAKIRIN-2022BKK008145

PATIENT

DRUGS (2)
  1. MOGAMULIZUMAB [Suspect]
     Active Substance: MOGAMULIZUMAB
     Indication: Product used for unknown indication
     Dosage: UNK
     Route: 042
  2. MOGAMULIZUMAB [Suspect]
     Active Substance: MOGAMULIZUMAB
     Dosage: UNK, 1X/MONTH
     Route: 042

REACTIONS (4)
  - Feeling abnormal [Unknown]
  - Dyspepsia [Unknown]
  - Back pain [Unknown]
  - Inappropriate schedule of product administration [Unknown]
